FAERS Safety Report 18653780 (Version 1)
Quarter: 2020Q4

REPORT INFORMATION
  Report Type: Spontaneous
  Country: GR (occurrence: GR)
  Receive Date: 20201223
  Receipt Date: 20201223
  Transmission Date: 20210114
  Serious: Yes (Other)
  Sender: FDA-Public Use
  Company Number: GR-INSMED, INC.-E2B_00000413

PATIENT
  Age: 47 Year
  Sex: Male

DRUGS (17)
  1. ISONIAZID. [Suspect]
     Active Substance: ISONIAZID
     Indication: TUBERCULOSIS BLADDER
  2. ETHAMBUTOL [Suspect]
     Active Substance: ETHAMBUTOL HYDROCHLORIDE
     Indication: BONE TUBERCULOSIS
     Dosage: UNK
  3. ISONIAZID. [Suspect]
     Active Substance: ISONIAZID
     Indication: DRUG REACTION WITH EOSINOPHILIA AND SYSTEMIC SYMPTOMS
  4. PYRAZINAMIDE. [Suspect]
     Active Substance: PYRAZINAMIDE
     Indication: PRODUCT USED FOR UNKNOWN INDICATION
  5. RIFAMPICIN [Suspect]
     Active Substance: RIFAMPIN
     Indication: TUBERCULOSIS OF GENITOURINARY SYSTEM
  6. ISONIAZID. [Suspect]
     Active Substance: ISONIAZID
     Indication: BONE TUBERCULOSIS
  7. LINEZOLID. [Suspect]
     Active Substance: LINEZOLID
     Indication: DRUG REACTION WITH EOSINOPHILIA AND SYSTEMIC SYMPTOMS
     Dosage: UNK
  8. ETHAMBUTOL [Suspect]
     Active Substance: ETHAMBUTOL HYDROCHLORIDE
     Indication: DRUG REACTION WITH EOSINOPHILIA AND SYSTEMIC SYMPTOMS
     Dosage: UNK
  9. ETHAMBUTOL [Suspect]
     Active Substance: ETHAMBUTOL HYDROCHLORIDE
     Indication: TUBERCULOSIS BLADDER
  10. AMIKACIN. [Suspect]
     Active Substance: AMIKACIN
     Indication: TUBERCULOSIS BLADDER
     Dosage: UNK
  11. LEVOFLOXACIN. [Suspect]
     Active Substance: LEVOFLOXACIN
     Indication: DRUG REACTION WITH EOSINOPHILIA AND SYSTEMIC SYMPTOMS
     Dosage: UNK
  12. RIFAMPICIN [Suspect]
     Active Substance: RIFAMPIN
     Indication: BONE TUBERCULOSIS
  13. LEVOFLOXACIN. [Suspect]
     Active Substance: LEVOFLOXACIN
     Indication: TUBERCULOSIS BLADDER
     Dosage: UNK
  14. AMIKACIN. [Suspect]
     Active Substance: AMIKACIN
     Indication: BONE TUBERCULOSIS
     Dosage: UNK
  15. ISONIAZID. [Suspect]
     Active Substance: ISONIAZID
     Indication: TUBERCULOSIS OF GENITOURINARY SYSTEM
  16. ISONIAZID. [Suspect]
     Active Substance: ISONIAZID
     Indication: BONE TUBERCULOSIS
     Dosage: UNK
  17. LEVOFLOXACIN. [Suspect]
     Active Substance: LEVOFLOXACIN
     Indication: BONE TUBERCULOSIS

REACTIONS (6)
  - Hypoacusis [Recovering/Resolving]
  - Deafness [Recovering/Resolving]
  - Renal impairment [Recovering/Resolving]
  - Anaemia [Recovering/Resolving]
  - Neuropathy peripheral [Recovering/Resolving]
  - Drug-induced liver injury [Unknown]
